FAERS Safety Report 19814166 (Version 2)
Quarter: 2021Q3

REPORT INFORMATION
  Report Type: Report from Study
  Country: ES (occurrence: ES)
  Receive Date: 20210909
  Receipt Date: 20210930
  Transmission Date: 20211014
  Serious: Yes (Other)
  Sender: FDA-Public Use
  Company Number: ES-MYLANLABS-2021M1059263

PATIENT
  Age: 79 Year
  Sex: Female
  Weight: 52.6 kg

DRUGS (15)
  1. TRAMADOL MYLAN [Suspect]
     Active Substance: TRAMADOL
     Indication: LIMB DISCOMFORT
  2. PARACETAMOL [Suspect]
     Active Substance: ACETAMINOPHEN
     Indication: LIMB DISCOMFORT
     Dosage: UNK
     Dates: start: 202103
  3. PARACETAMOL [Suspect]
     Active Substance: ACETAMINOPHEN
     Indication: PAIN IN EXTREMITY
  4. PARACETAMOL [Suspect]
     Active Substance: ACETAMINOPHEN
     Indication: EXTREMITY CONTRACTURE
  5. INSULIN GLARGINE [Suspect]
     Active Substance: INSULIN GLARGINE
     Indication: TYPE 2 DIABETES MELLITUS
     Dosage: 30 IU, QD
     Route: 058
     Dates: start: 20210319
  6. DIAZEPAM. [Concomitant]
     Active Substance: DIAZEPAM
     Indication: LIMB DISCOMFORT
  7. VICTOZA [Concomitant]
     Active Substance: LIRAGLUTIDE
     Dosage: UNK
  8. NOVOMIX [Concomitant]
     Active Substance: INSULIN ASPART
     Dosage: UNK
  9. TRAMADOL MYLAN [Suspect]
     Active Substance: TRAMADOL
     Indication: PAIN IN EXTREMITY
     Dosage: UNK UNK, BID
     Dates: start: 202103
  10. TRAMADOL MYLAN [Suspect]
     Active Substance: TRAMADOL
     Indication: EXTREMITY CONTRACTURE
  11. FORXIGA [Concomitant]
     Active Substance: DAPAGLIFLOZIN
     Indication: TYPE 2 DIABETES MELLITUS
     Dosage: 1 DF, QD (0?1?0)
  12. OZEMPIC [Concomitant]
     Active Substance: SEMAGLUTIDE
     Indication: TYPE 2 DIABETES MELLITUS
     Dosage: UNK, QW
  13. ENANTYUM [Concomitant]
     Active Substance: DEXKETOPROFEN TROMETAMOL
     Indication: LIMB DISCOMFORT
     Dosage: UNK
     Dates: start: 20210319
  14. DIAZEPAM. [Concomitant]
     Active Substance: DIAZEPAM
     Indication: EXTREMITY CONTRACTURE
     Dosage: 1 DF, QD (AFTER DINNER)
  15. DIAZEPAM. [Concomitant]
     Active Substance: DIAZEPAM
     Indication: PAIN IN EXTREMITY

REACTIONS (9)
  - Gait disturbance [Unknown]
  - Hyperglycaemia [Unknown]
  - Pain in extremity [Recovering/Resolving]
  - Poor quality sleep [Unknown]
  - Listless [Unknown]
  - Extremity contracture [Recovering/Resolving]
  - Sciatica [Unknown]
  - Limb discomfort [Recovering/Resolving]
  - Blood glucose increased [Not Recovered/Not Resolved]

NARRATIVE: CASE EVENT DATE: 202103
